FAERS Safety Report 15880033 (Version 1)
Quarter: 2019Q1

REPORT INFORMATION
  Report Type: Spontaneous
  Country: US (occurrence: US)
  Receive Date: 20190103
  Receipt Date: 20190103
  Transmission Date: 20190417
  Serious: No
  Sender: FDA-Public Use
  Company Number: None

PATIENT
  Age: 62 Year
  Sex: Female

DRUGS (4)
  1. VERZENIO [Suspect]
     Active Substance: ABEMACICLIB
     Dates: start: 20181008
  2. HYDROCHLOROTHIAZIDE. [Concomitant]
     Active Substance: HYDROCHLOROTHIAZIDE
  3. FASLODEX [Concomitant]
     Active Substance: FULVESTRANT
  4. IBANDRONATE [Concomitant]
     Active Substance: IBANDRONATE SODIUM

REACTIONS (4)
  - Diarrhoea [None]
  - Unhealthy diet [None]
  - Nausea [None]
  - Peripheral swelling [None]

NARRATIVE: CASE EVENT DATE: 20190103
